FAERS Safety Report 4822885-7 (Version None)
Quarter: 2005Q4

REPORT INFORMATION
  Report Type: 
  Country: None (occurrence: None)
  Receive Date: 20051104
  Receipt Date: 20051021
  Transmission Date: 20060501
  Serious: Yes (Other)
  Sender: FDA-Public Use
  Company Number: USA-2005-0021663

PATIENT
  Sex: Female

DRUGS (2)
  1. MS CONTIN [Suspect]
     Indication: CANCER PAIN
     Dosage: MG
  2. MORPHINE SULFATE [Concomitant]

REACTIONS (1)
  - INCORRECT DOSE ADMINISTERED [None]
